FAERS Safety Report 6367404-1 (Version None)
Quarter: 2009Q3

REPORT INFORMATION
  Report Type: 
  Country: None (occurrence: None)
  Receive Date: 20090921
  Receipt Date: 20090914
  Transmission Date: 20100115
  Serious: Yes (Hospitalization)
  Sender: FDA-Public Use
  Company Number: A0807914A

PATIENT
  Sex: Male
  Weight: 68 kg

DRUGS (1)
  1. SERETIDE [Suspect]
     Indication: EMPHYSEMA
     Dosage: 1PUFF PER DAY
     Route: 055
     Dates: start: 20090628

REACTIONS (2)
  - DIARRHOEA [None]
  - MALAISE [None]
